FAERS Safety Report 18539527 (Version 1)
Quarter: 2020Q4

REPORT INFORMATION
  Report Type: Spontaneous
  Country: US (occurrence: US)
  Receive Date: 20201123
  Receipt Date: 20201123
  Transmission Date: 20210114
  Serious: No
  Sender: FDA-Public Use
  Company Number: None

PATIENT
  Age: 32 Year
  Sex: Female
  Weight: 81 kg

DRUGS (1)
  1. LEVOTHYROXINE (GENERIC) [Suspect]
     Active Substance: LEVOTHYROXINE

REACTIONS (3)
  - Product substitution issue [None]
  - Fatigue [None]
  - Blood thyroid stimulating hormone abnormal [None]
